FAERS Safety Report 5828781-0 (Version None)
Quarter: 2008Q3

REPORT INFORMATION
  Report Type: 
  Country: None (occurrence: None)
  Receive Date: 20080731
  Receipt Date: 20080721
  Transmission Date: 20090109
  Serious: Yes (Disabling, Other)
  Sender: FDA-Public Use
  Company Number: US-MERCK-0804USA02550

PATIENT
  Age: 75 Year
  Sex: Female
  Weight: 61 kg

DRUGS (6)
  1. FOSAMAX [Suspect]
     Indication: OSTEOPENIA
     Route: 048
     Dates: start: 20061117, end: 20080413
  2. FOSAMAX [Suspect]
     Indication: OSTEOPOROSIS
     Route: 048
     Dates: start: 20061117, end: 20080413
  3. AMLODIPINE BESYLATE [Concomitant]
     Route: 048
  4. LEVOTHROID [Concomitant]
     Route: 048
  5. METOPROLOL [Concomitant]
     Route: 048
  6. OXYBUTYNIN [Concomitant]
     Route: 048

REACTIONS (5)
  - GASTROOESOPHAGEAL REFLUX DISEASE [None]
  - GINGIVAL BLEEDING [None]
  - HEADACHE [None]
  - INSOMNIA [None]
  - PAIN IN JAW [None]
